FAERS Safety Report 23731471 (Version 1)
Quarter: 2024Q2

REPORT INFORMATION
  Report Type: Spontaneous
  Country: US (occurrence: US)
  Receive Date: 20240411
  Receipt Date: 20240411
  Transmission Date: 20240715
  Serious: No
  Sender: FDA-Public Use
  Company Number: US-GALDERMA-US202400454

PATIENT

DRUGS (2)
  1. DIFFERIN [Suspect]
     Active Substance: ADAPALENE
     Indication: Product used for unknown indication
     Dosage: 1 DOSAGE FORM, EVERY THIRD NIGHT
     Route: 061
  2. DIFFERIN [Suspect]
     Active Substance: ADAPALENE
     Dosage: UNK, QD, EVERY NIGHT
     Route: 061
     Dates: start: 202402

REACTIONS (6)
  - Skin discomfort [Recovered/Resolved]
  - Acne pustular [Unknown]
  - Skin irritation [Recovered/Resolved]
  - Acne [Unknown]
  - Intentional product misuse [Recovered/Resolved]
  - Intentional underdose [Recovered/Resolved]
